FAERS Safety Report 5919277-6 (Version None)
Quarter: 2008Q4

REPORT INFORMATION
  Report Type: 
  Country: None (occurrence: None)
  Receive Date: 20081015
  Receipt Date: 20081006
  Transmission Date: 20090506
  Serious: Yes (Hospitalization, Other)
  Sender: FDA-Public Use
  Company Number: PHHY2008GB22137

PATIENT
  Sex: Male

DRUGS (9)
  1. CLOZARIL [Suspect]
     Indication: SCHIZOPHRENIA
     Dosage: 450 MG/DAY
     Dates: start: 20061127
  2. AMLODIPINE [Concomitant]
     Dosage: 5 MG, BID
     Route: 048
  3. DIPYRIDAMOLE [Concomitant]
     Dosage: 200 MG, BID
     Route: 048
  4. HYOSCINE HBR HYT [Concomitant]
     Dosage: 300 MG, BID
     Route: 048
  5. OMEPRAZOLE [Concomitant]
     Dosage: 20 MG, BID
     Route: 048
  6. ENALAPRIL MALEATE [Concomitant]
     Dosage: 15 MG, QD
     Route: 048
  7. VENLAFAXINE HCL [Concomitant]
     Dosage: 187.5 G, BID
     Route: 048
  8. CHLORPHENIRAMINE MALEATE [Concomitant]
     Dosage: 4 MG, TID
     Route: 048
  9. ASPIRIN [Concomitant]
     Dosage: 75 MG, QD
     Route: 048

REACTIONS (5)
  - CONDITION AGGRAVATED [None]
  - LOWER RESPIRATORY TRACT INFECTION [None]
  - MALAISE [None]
  - NEUTROPHIL COUNT INCREASED [None]
  - WHITE BLOOD CELL COUNT INCREASED [None]
